FAERS Safety Report 25301035 (Version 1)
Quarter: 2025Q2

REPORT INFORMATION
  Report Type: Spontaneous
  Country: US (occurrence: US)
  Receive Date: 20250512
  Receipt Date: 20250512
  Transmission Date: 20250716
  Serious: No
  Sender: UCB
  Company Number: US-UCBSA-2024057503

PATIENT
  Sex: Female

DRUGS (20)
  1. CIMZIA [Suspect]
     Active Substance: CERTOLIZUMAB PEGOL
     Indication: Nail psoriasis
     Dosage: 400 MILLIGRAM, EV 2 WEEKS(QOW)
     Route: 058
     Dates: start: 20230906
  2. CIMZIA [Suspect]
     Active Substance: CERTOLIZUMAB PEGOL
     Indication: Psoriasis
     Dosage: 200 MILLIGRAM, EV 2 WEEKS(QOW)
     Route: 058
  3. CIMZIA [Suspect]
     Active Substance: CERTOLIZUMAB PEGOL
     Indication: Psoriasis
  4. OTEZLA [Concomitant]
     Active Substance: APREMILAST
     Indication: Psoriasis
     Dosage: 30 MILLIGRAM, 2X/DAY (BID) (30 MG 1BY MOUTH TWICE DAILY)
     Route: 048
  5. SALICYLIC ACID [Concomitant]
     Active Substance: SALICYLIC ACID
     Indication: Psoriasis
     Dosage: UNK UNK, ONCE DAILY (QD)
  6. COAL TAR [Concomitant]
     Active Substance: COAL TAR
     Indication: Psoriasis
     Dosage: UNK, ONCE DAILY (QD)
  7. KETO [KETOCONAZOLE] [Concomitant]
     Indication: Psoriasis
     Dosage: UNK, ONCE DAILY (QD)
  8. HYDROCORTISONE [Concomitant]
     Active Substance: HYDROCORTISONE
     Indication: Skin disorder prophylaxis
  9. KETOCONAZOLE [Concomitant]
     Active Substance: KETOCONAZOLE
     Indication: Psoriasis
     Dosage: UNK, ONCE DAILY (QD) (2% TOPICAL, THIN LAYER SHAMPOO)
     Route: 061
  10. CLINDAMYCIN PHOSPHATE [Concomitant]
     Active Substance: CLINDAMYCIN PHOSPHATE
     Indication: Product used for unknown indication
     Route: 061
  11. NAPROXEN [Concomitant]
     Active Substance: NAPROXEN
     Indication: Product used for unknown indication
     Route: 048
  12. TYLENOL [Concomitant]
     Active Substance: ACETAMINOPHEN
     Indication: Product used for unknown indication
     Route: 048
  13. CALCIPOTRIENE [Concomitant]
     Active Substance: CALCIPOTRIENE
     Indication: Psoriasis
     Dosage: UNK, 2X/DAY (BID) (0.005 % AT SCALP SMALL AMOUNT)
  14. CLOBETASOL [Concomitant]
     Active Substance: CLOBETASOL
     Indication: Psoriasis
     Dosage: UNK, ONCE DAILY (QD) (THIN LAYER SOLUTION AT SCALP)
  15. CLOBETASOL [Concomitant]
     Active Substance: CLOBETASOL
     Indication: Skin plaque
  16. ALCLOMETASONE [Concomitant]
     Active Substance: ALCLOMETASONE
     Indication: Psoriasis
     Dosage: UNK, 2X/DAY (BID)
     Route: 061
  17. TACLONEX [Concomitant]
     Active Substance: BETAMETHASONE DIPROPIONATE\CALCIPOTRIENE\CALCIPOTRIENE HYDRATE
     Indication: Psoriasis
     Dosage: UNK, 2X/DAY (BID) (APPLY THIN LAYER TO SCALP TWICE DAILY UNTIL RESOLVED THEN AS NEEDED FOR FLARES)
     Route: 061
  18. TACLONEX [Concomitant]
     Active Substance: BETAMETHASONE DIPROPIONATE\CALCIPOTRIENE\CALCIPOTRIENE HYDRATE
     Indication: Condition aggravated
  19. BENZOYL PEROXIDE [Concomitant]
     Active Substance: BENZOYL PEROXIDE
     Indication: Hidradenitis
  20. CHLORHEXIDINE [Concomitant]
     Active Substance: CHLORHEXIDINE
     Indication: Hidradenitis

REACTIONS (7)
  - Illness [Unknown]
  - Contusion [Recovering/Resolving]
  - Malaise [Unknown]
  - Injection site pain [Unknown]
  - Injection site erythema [Unknown]
  - Injection site urticaria [Unknown]
  - Maternal exposure during pregnancy [Unknown]

NARRATIVE: CASE EVENT DATE: 20230101
